FAERS Safety Report 22153046 (Version 1)
Quarter: 2023Q1

REPORT INFORMATION
  Report Type: Spontaneous
  Country: CH (occurrence: CH)
  Receive Date: 20230329
  Receipt Date: 20230329
  Transmission Date: 20230417
  Serious: Yes (Hospitalization, Other)
  Sender: FDA-Public Use
  Company Number: None

PATIENT
  Age: 54 Year
  Sex: Male

DRUGS (8)
  1. FLOXAL [Suspect]
     Active Substance: OFLOXACIN
     Indication: Lens extraction
     Dosage: UNI DOSE. RIGHT EYE
     Route: 047
     Dates: start: 20221101, end: 20221101
  2. FLOXAL [Suspect]
     Active Substance: OFLOXACIN
     Dosage: UNI DOSE. LEFT EYE
     Route: 047
     Dates: start: 20221110, end: 20221110
  3. CEFUROXIME SODIUM [Suspect]
     Active Substance: CEFUROXIME SODIUM
     Indication: Lens extraction
     Dosage: RIGHT EYE
     Route: 031
     Dates: start: 20221101, end: 20221101
  4. CEFUROXIME SODIUM [Suspect]
     Active Substance: CEFUROXIME SODIUM
     Dosage: LEFT EYE
     Route: 031
     Dates: start: 20221110, end: 20221110
  5. LIDOCAINE [Suspect]
     Active Substance: LIDOCAINE
     Indication: Lens extraction
     Dosage: 0.5 %. RIGHT EYE
     Route: 031
     Dates: start: 20221101, end: 20221101
  6. LIDOCAINE [Suspect]
     Active Substance: LIDOCAINE
     Dosage: 0.5 %. LEFT EYE
     Route: 031
     Dates: start: 20221110, end: 20221110
  7. TESTOSTERONE [Suspect]
     Active Substance: TESTOSTERONE
     Indication: Product used for unknown indication
     Route: 003
  8. 7-KETO-DEHYDROEPIANDROSTERONE [Suspect]
     Active Substance: 7-KETO-DEHYDROEPIANDROSTERONE
     Indication: Product used for unknown indication
     Route: 048

REACTIONS (1)
  - Retinopathy [Not Recovered/Not Resolved]

NARRATIVE: CASE EVENT DATE: 20221201
